FAERS Safety Report 4264123-2 (Version None)
Quarter: 2004Q1

REPORT INFORMATION
  Report Type: 
  Country: None (occurrence: None)
  Receive Date: 20040106
  Receipt Date: 20040106
  Transmission Date: 20041129
  Serious: Yes (Hospitalization)
  Sender: FDA-Public Use
  Company Number: None

PATIENT
  Age: 49 Year
  Sex: Male
  Weight: 51.7101 kg

DRUGS (3)
  1. ENALAPRIL MALEATE [Suspect]
     Indication: CARDIOMYOPATHY
     Dosage: 20 MG PO BID
     Route: 048
     Dates: start: 20031126, end: 20031219
  2. ENALAPRIL MALEATE [Suspect]
     Indication: HYPERTENSION
     Dosage: 20 MG PO BID
     Route: 048
     Dates: start: 20031126, end: 20031219
  3. SPIRONOLACTONE [Suspect]
     Indication: CARDIOMYOPATHY
     Dosage: 50 MG PO QD
     Route: 048
     Dates: start: 20031023, end: 20031219

REACTIONS (2)
  - ANGIONEUROTIC OEDEMA [None]
  - BLOOD POTASSIUM INCREASED [None]
